FAERS Safety Report 8785234 (Version 1)
Quarter: 2012Q4

REPORT INFORMATION
  Report Type: 
  Country: US (occurrence: US)
  Receive Date: 20120914
  Receipt Date: 20120914
  Transmission Date: 20130627
  Serious: Yes (Hospitalization)
  Sender: FDA-Public Use
  Company Number: US-BAYER-2012-095078

PATIENT
  Age: 47 Year
  Sex: Female

DRUGS (4)
  1. YAZ [Suspect]
  2. SYNTHROID [Concomitant]
  3. METRONIDAZOLE [Concomitant]
     Dosage: UNK
     Route: 067
  4. LEVAQUIN [Concomitant]
     Indication: PULMONARY INFARCTION

REACTIONS (2)
  - Pulmonary embolism [None]
  - Deep vein thrombosis [None]
